FAERS Safety Report 7950742-6 (Version None)
Quarter: 2011Q4

REPORT INFORMATION
  Report Type: 
  Country: None (occurrence: None)
  Receive Date: 20111125
  Receipt Date: 20111111
  Transmission Date: 20120403
  Serious: Yes (Other)
  Sender: FDA-Public Use
  Company Number: 2011SP053420

PATIENT
  Age: 80 Year
  Sex: Female

DRUGS (1)
  1. DULERA ORAL INHALATION [Suspect]
     Indication: ASTHMA
     Dosage: BID; INH
     Route: 055
     Dates: start: 20110501

REACTIONS (3)
  - EXPIRED DRUG ADMINISTERED [None]
  - MACULAR DEGENERATION [None]
  - CONDITION AGGRAVATED [None]
